FAERS Safety Report 6051382-9 (Version None)
Quarter: 2009Q1

REPORT INFORMATION
  Report Type: 
  Country: None (occurrence: None)
  Receive Date: 20090121
  Receipt Date: 20090109
  Transmission Date: 20090719
  Serious: Yes (Death, Life-Threatening, Hospitalization)
  Sender: FDA-Public Use
  Company Number: 140972

PATIENT
  Age: 81 Year
  Sex: Male

DRUGS (19)
  1. DBL CYTARABINE 100MG/5ML INJECTION VIAL (CYTARABINE) [Suspect]
     Indication: ACUTE MYELOID LEUKAEMIA
     Dosage: 39.6 MG, ONCE A DAY, SUBCUTANEOUS 37.8 MG, ONCE A DAY, SUBCUTANEOUS
     Route: 058
     Dates: start: 20081001, end: 20081002
  2. DBL CYTARABINE 100MG/5ML INJECTION VIAL (CYTARABINE) [Suspect]
     Indication: ACUTE MYELOID LEUKAEMIA
     Dosage: 39.6 MG, ONCE A DAY, SUBCUTANEOUS 37.8 MG, ONCE A DAY, SUBCUTANEOUS
     Route: 058
     Dates: start: 20081029, end: 20081107
  3. HYDROXYCARBAMIDE [Concomitant]
  4. ZOFRAN [Concomitant]
  5. SODIUM CHLORIDE 0.9% INJECTION, USP, IN FLEXIBLE CONTAINERS [Concomitant]
  6. POTASSIUM CHLORIDE FOR INJ, USP [Concomitant]
  7. CAPTOPRIL [Concomitant]
  8. METOCARD [Concomitant]
  9. ENARENAL [Concomitant]
  10. TERTENSIF [Concomitant]
  11. LACTULOSE [Concomitant]
  12. CEFTAZIDIME [Concomitant]
  13. FUROSEMIDE [Concomitant]
  14. MILURIT [Concomitant]
  15. MERONEM /01250501/ [Concomitant]
  16. KETOCONAZOLE [Concomitant]
  17. EXACYL [Concomitant]
  18. PROXACIN /00697201/ [Concomitant]
  19. BLOOD AND RELATED PRODUCTS [Concomitant]

REACTIONS (6)
  - BLOOD CREATINE INCREASED [None]
  - C-REACTIVE PROTEIN INCREASED [None]
  - GENERAL PHYSICAL HEALTH DETERIORATION [None]
  - HYPERTENSIVE CRISIS [None]
  - PULMONARY OEDEMA [None]
  - PYREXIA [None]
